FAERS Safety Report 6341094-6 (Version None)
Quarter: 2009Q3

REPORT INFORMATION
  Report Type: 
  Country: None (occurrence: None)
  Receive Date: 20090904
  Receipt Date: 20090827
  Transmission Date: 20100115
  Serious: Yes (Hospitalization)
  Sender: FDA-Public Use
  Company Number: B0590766A

PATIENT
  Sex: Female
  Weight: 60 kg

DRUGS (3)
  1. TYKERB [Suspect]
     Indication: BREAST CANCER
     Dosage: 1250MG PER DAY
     Route: 048
     Dates: start: 20090727, end: 20090803
  2. CAPECITABINE [Concomitant]
     Indication: BREAST CANCER
     Dosage: 2500MG PER DAY
     Route: 065
     Dates: start: 20090727, end: 20090803
  3. IBANDRONATE SODIUM [Concomitant]
     Dosage: 6MG PER DAY
     Route: 042
     Dates: start: 20090727, end: 20090803

REACTIONS (3)
  - DIZZINESS [None]
  - HEADACHE [None]
  - METASTASES TO CENTRAL NERVOUS SYSTEM [None]
